FAERS Safety Report 10655556 (Version 2)
Quarter: 2015Q1

REPORT INFORMATION
  Report Type: Spontaneous
  Country: DE (occurrence: DE)
  Receive Date: 20141216
  Receipt Date: 20150102
  Transmission Date: 20150720
  Serious: Yes (Other)
  Sender: FDA-Public Use
  Company Number: DE-ASTELLAS-2014US019850

PATIENT
  Sex: Male

DRUGS (11)
  1. CLOPIDOGREL [Concomitant]
     Active Substance: CLOPIDOGREL BISULFATE
     Indication: PLATELET AGGREGATION INHIBITION
     Dosage: UNK UNK, ONCE DAILY
     Route: 048
     Dates: start: 201401, end: 201411
  2. NOVORAPID [Concomitant]
     Active Substance: INSULIN ASPART
     Indication: DIABETES MELLITUS
     Dosage: ACCORDING TO PLAN, UNKNOWN FREQ.
     Route: 058
     Dates: start: 201401, end: 201411
  3. BETMIGA [Suspect]
     Active Substance: MIRABEGRON
     Indication: URGE INCONTINENCE
     Dosage: UNK UNK, ONCE DAILY
     Route: 048
     Dates: start: 20141115, end: 20141121
  4. ASPIRIN. [Concomitant]
     Active Substance: ASPIRIN
     Indication: PLATELET AGGREGATION INHIBITION
     Dosage: 1-0-0, ONCE DAILY
     Route: 048
     Dates: start: 201401, end: 201411
  5. BISOPROLOL [Concomitant]
     Active Substance: BISOPROLOL
     Indication: BLOOD PRESSURE
     Dosage: UNK UNK, ONCE DAILY
     Route: 048
     Dates: start: 201401, end: 201411
  6. PANTOPRAZOLE [Concomitant]
     Active Substance: PANTOPRAZOLE SODIUM
     Indication: PROPHYLAXIS AGAINST GASTROINTESTINAL ULCER
     Dosage: UNK UNK, ONCE DAILY
     Route: 048
     Dates: start: 201401, end: 201411
  7. VALSARTAN. [Concomitant]
     Active Substance: VALSARTAN
     Indication: BLOOD PRESSURE
     Dosage: UNK UNK, ONCE DAILY
     Route: 048
     Dates: start: 201401, end: 201411
  8. METFORMIN [Concomitant]
     Active Substance: METFORMIN HYDROCHLORIDE
     Indication: DIABETES MELLITUS
     Dosage: UNK UNK, ONCE DAILY
     Route: 048
     Dates: start: 201401, end: 201411
  9. ATORVASTATIN [Concomitant]
     Active Substance: ATORVASTATIN
     Indication: PROPHYLAXIS
     Dosage: UNK UNK, ONCE DAILY
     Route: 048
     Dates: start: 201401, end: 201411
  10. LANTUS [Concomitant]
     Active Substance: INSULIN GLARGINE
     Indication: DIABETES MELLITUS
     Route: 058
     Dates: start: 201401, end: 201411
  11. TORASEMID [Concomitant]
     Active Substance: TORSEMIDE
     Indication: POLYURIA
     Dosage: UNK UNK, ONCE DAILY
     Route: 048
     Dates: start: 201401, end: 201411

REACTIONS (2)
  - Retinal haemorrhage [Not Recovered/Not Resolved]
  - Epistaxis [Recovered/Resolved]

NARRATIVE: CASE EVENT DATE: 20141115
